FAERS Safety Report 7503809-0 (Version None)
Quarter: 2011Q2

REPORT INFORMATION
  Report Type: 
  Country: None (occurrence: None)
  Receive Date: 20110525
  Receipt Date: 20110520
  Transmission Date: 20111010
  Serious: Yes (Hospitalization)
  Sender: FDA-Public Use
  Company Number: AT-BRISTOL-MYERS SQUIBB COMPANY-15644073

PATIENT
  Age: 30 Year
  Sex: Male

DRUGS (3)
  1. LITHIUM CARBONATE [Suspect]
     Indication: BIPOLAR DISORDER
  2. ABILIFY [Suspect]
     Indication: BIPOLAR DISORDER
     Dosage: RESTARTED WITH 10MG TWICE DAILY:THEN DOSAGE WAS DECREASED TO 10MG ONCE DAILY.
     Route: 048
  3. ABILIFY [Suspect]
     Indication: MANIA
     Dosage: RESTARTED WITH 10MG TWICE DAILY:THEN DOSAGE WAS DECREASED TO 10MG ONCE DAILY.
     Route: 048

REACTIONS (2)
  - MANIA [None]
  - TREATMENT NONCOMPLIANCE [None]
